FAERS Safety Report 25854103 (Version 1)
Quarter: 2025Q3

REPORT INFORMATION
  Report Type: Spontaneous
  Country: US (occurrence: US)
  Receive Date: 20250926
  Receipt Date: 20250926
  Transmission Date: 20251020
  Serious: No
  Sender: PFIZER
  Company Number: US-PFIZER INC-202500191911

PATIENT
  Age: 62 Year
  Sex: Female

DRUGS (10)
  1. XELJANZ XR [Suspect]
     Active Substance: TOFACITINIB CITRATE
     Indication: Rheumatoid arthritis
     Dosage: 11 MG, 1X/DAY
     Dates: end: 20250922
  2. ATORVASTATIN [Concomitant]
     Active Substance: ATORVASTATIN
  3. METFORMIN [Concomitant]
     Active Substance: METFORMIN HYDROCHLORIDE
  4. DICLOFENAC [Concomitant]
     Active Substance: DICLOFENAC
  5. OMEGA-3 FATTY ACIDS [Concomitant]
     Active Substance: OMEGA-3 FATTY ACIDS
  6. INDOMETHACIN [Concomitant]
     Active Substance: INDOMETHACIN
  7. TYLENOL [Concomitant]
     Active Substance: ACETAMINOPHEN
  8. IRON [Concomitant]
     Active Substance: IRON
  9. LUTEIN [Concomitant]
     Active Substance: LUTEIN
  10. BIOTIN [Concomitant]
     Active Substance: BIOTIN

REACTIONS (4)
  - Alopecia [Unknown]
  - Fatigue [Unknown]
  - Drug hypersensitivity [Unknown]
  - Throat irritation [Unknown]
